FAERS Safety Report 5129467-0 (Version None)
Quarter: 2006Q4

REPORT INFORMATION
  Report Type: 
  Country: None (occurrence: None)
  Receive Date: 20061018
  Receipt Date: 20061005
  Transmission Date: 20070319
  Serious: Yes (Other)
  Sender: FDA-Public Use
  Company Number: PHEH2006US12620

PATIENT
  Age: 56 Year
  Sex: Female

DRUGS (2)
  1. SENOKOT /USA/ [Concomitant]
  2. ZELNORM [Suspect]
     Indication: IRRITABLE BOWEL SYNDROME
     Dosage: 6 MG, ONCE/SINGLE
     Route: 048
     Dates: start: 20061005, end: 20061005

REACTIONS (3)
  - DIARRHOEA [None]
  - DIZZINESS [None]
  - STOMACH DISCOMFORT [None]
